FAERS Safety Report 9320188 (Version 1)
Quarter: 2013Q2

REPORT INFORMATION
  Report Type: Spontaneous
  Country: US (occurrence: US)
  Receive Date: 20130530
  Receipt Date: 20130530
  Transmission Date: 20140414
  Serious: No
  Sender: FDA-Public Use
  Company Number: US-009507513-1305USA013179

PATIENT
  Age: 63 Year
  Sex: Female

DRUGS (7)
  1. SAPHRIS [Suspect]
     Indication: SCHIZOPHRENIA
     Dosage: UNK
  2. TRAZODONE HYDROCHLORIDE [Concomitant]
  3. CLONIDINE [Concomitant]
  4. GEODON [Concomitant]
  5. ALPRAZOLAM [Concomitant]
  6. LAMICTAL [Concomitant]
  7. CITALOPRAM [Concomitant]

REACTIONS (1)
  - Adverse event [Unknown]
